FAERS Safety Report 11111789 (Version 1)
Quarter: 2015Q2

REPORT INFORMATION
  Report Type: Spontaneous
  Country: US (occurrence: None)
  Receive Date: 20150512
  Receipt Date: 20150512
  Transmission Date: 20150821
  Serious: Yes (Life-Threatening, Hospitalization)
  Sender: FDA-Public Use
  Company Number: None

PATIENT
  Age: 65 Year
  Sex: Male
  Weight: 99.79 kg

DRUGS (17)
  1. AMIODARONE [Concomitant]
     Active Substance: AMIODARONE
  2. TORSEMIDE. [Concomitant]
     Active Substance: TORSEMIDE
  3. MULTIVITAMIN [Concomitant]
     Active Substance: VITAMINS
  4. ASPIRIN. [Concomitant]
     Active Substance: ASPIRIN
  5. ANCEF IV [Concomitant]
  6. PRIMACOR IV [Concomitant]
  7. CO-ENZYME Q 10 [Concomitant]
  8. CEFAZOLIN [Suspect]
     Active Substance: CEFAZOLIN
     Indication: WOUND INFECTION
     Dosage: 2GRAMS EVERY 3 HOURS, THREE TIMES DAILY, INTO A VEIN
     Dates: start: 20150408, end: 20150426
  9. LIPITOR [Concomitant]
     Active Substance: ATORVASTATIN CALCIUM
  10. CARVEDILOL. [Concomitant]
     Active Substance: CARVEDILOL
  11. PROTONIX [Concomitant]
     Active Substance: PANTOPRAZOLE SODIUM
  12. SPIRONOLACTONE. [Concomitant]
     Active Substance: SPIRONOLACTONE
  13. ASPIRIN. [Concomitant]
     Active Substance: ASPIRIN
  14. FISH OIL [Concomitant]
     Active Substance: FISH OIL
  15. JANUVIA [Concomitant]
     Active Substance: SITAGLIPTIN PHOSPHATE
  16. WARFARIN [Concomitant]
     Active Substance: WARFARIN
  17. VITAMIN D [Concomitant]
     Active Substance: CHOLECALCIFEROL

REACTIONS (11)
  - Renal failure [None]
  - International normalised ratio increased [None]
  - Impaired work ability [None]
  - Haematochezia [None]
  - Chills [None]
  - Nausea [None]
  - Diarrhoea [None]
  - Lethargy [None]
  - Abasia [None]
  - Blood pressure decreased [None]
  - Epistaxis [None]

NARRATIVE: CASE EVENT DATE: 20150427
